FAERS Safety Report 9309341 (Version 2)
Quarter: 2013Q2

REPORT INFORMATION
  Report Type: Other
  Country: US (occurrence: US)
  Receive Date: 20130525
  Receipt Date: 20130525
  Transmission Date: 20140414
  Serious: No
  Sender: FDA-Public Use
  Company Number: US-BRISTOL-MYERS SQUIBB COMPANY-18579565

PATIENT
  Sex: 0

DRUGS (1)
  1. EXENATIDE UNK MANU FORM [Suspect]
     Route: 058

REACTIONS (1)
  - Nausea [Recovered/Resolved]
